FAERS Safety Report 13720364 (Version 6)
Quarter: 2018Q1

REPORT INFORMATION
  Report Type: Report from Study
  Country: CA (occurrence: CA)
  Receive Date: 20170706
  Receipt Date: 20180112
  Transmission Date: 20180508
  Serious: Yes (Other)
  Sender: FDA-Public Use
  Company Number: CA-ROCHE-1959341

PATIENT
  Sex: Female

DRUGS (14)
  1. ACTEMRA [Suspect]
     Active Substance: TOCILIZUMAB
     Dosage: NEXT INFUSION SCHEDULED 01/SEP/2017
     Route: 042
     Dates: start: 20170801
  2. RABEPRAZOLE [Concomitant]
     Active Substance: RABEPRAZOLE
  3. ACTEMRA [Suspect]
     Active Substance: TOCILIZUMAB
     Dosage: NEXT INFUSION SCHEDULED: 2017-SEP-29
     Route: 042
     Dates: start: 20170831
  4. IMURAN [Concomitant]
     Active Substance: AZATHIOPRINE
     Route: 065
  5. ACTEMRA [Suspect]
     Active Substance: TOCILIZUMAB
     Indication: RHEUMATOID ARTHRITIS
     Route: 042
     Dates: start: 20170704
  6. ACTEMRA [Suspect]
     Active Substance: TOCILIZUMAB
     Dosage: NEXT INFUSION SCHEDULED: 2017-SEP-29
     Route: 042
     Dates: start: 20170831
  7. ADALAT [Concomitant]
     Active Substance: NIFEDIPINE
     Route: 065
  8. CALTRATE [Concomitant]
     Active Substance: CALCIUM CARBONATE
  9. QUININE [Concomitant]
     Active Substance: QUININE
     Dosage: PRN (AS REQUIRED)
     Route: 065
  10. PREDNISONE. [Concomitant]
     Active Substance: PREDNISONE
     Route: 065
  11. NEXIUM [Concomitant]
     Active Substance: ESOMEPRAZOLE MAGNESIUM
  12. ATORVASTATIN [Concomitant]
     Active Substance: ATORVASTATIN
     Route: 065
  13. ACTEMRA [Suspect]
     Active Substance: TOCILIZUMAB
     Dosage: NEXT INFUSION SCHEDULED: 21/DEC/2017
     Route: 042
     Dates: start: 20171123
  14. ACTEMRA [Suspect]
     Active Substance: TOCILIZUMAB
     Route: 042
     Dates: start: 20170605, end: 20171221

REACTIONS (6)
  - Investigation abnormal [Unknown]
  - Musculoskeletal stiffness [Not Recovered/Not Resolved]
  - Drug ineffective [Unknown]
  - Arthralgia [Recovering/Resolving]
  - Arthralgia [Not Recovered/Not Resolved]
  - Joint stiffness [Not Recovered/Not Resolved]
